FAERS Safety Report 24293979 (Version 1)
Quarter: 2024Q3

REPORT INFORMATION
  Report Type: Report from Study
  Country: EG (occurrence: None)
  Receive Date: 20240906
  Receipt Date: 20240906
  Transmission Date: 20241017
  Serious: Yes (Other)
  Sender: ASTRAZENECA
  Company Number: 2024A199452

PATIENT
  Sex: Female

DRUGS (1)
  1. LYNPARZA [Suspect]
     Active Substance: OLAPARIB
     Indication: Breast cancer
     Route: 048
     Dates: start: 20240503, end: 20240629

REACTIONS (3)
  - Pyrexia [Recovering/Resolving]
  - Lethargy [Recovering/Resolving]
  - Dyspnoea [Recovering/Resolving]
